FAERS Safety Report 13629289 (Version 2)
Quarter: 2017Q2

REPORT INFORMATION
  Report Type: Spontaneous
  Country: US (occurrence: US)
  Receive Date: 20170608
  Receipt Date: 20170614
  Transmission Date: 20170830
  Serious: Yes (Death, Other)
  Sender: FDA-Public Use
  Company Number: US-JNJFOC-20170605030

PATIENT
  Sex: Female

DRUGS (1)
  1. XARELTO [Suspect]
     Active Substance: RIVAROXABAN
     Indication: PRODUCT USED FOR UNKNOWN INDICATION
     Route: 048
     Dates: start: 2012, end: 2015

REACTIONS (6)
  - Death [Fatal]
  - Respiratory failure [Unknown]
  - Asthenia [Unknown]
  - Acute kidney injury [Unknown]
  - Sepsis [Unknown]
  - Mucosal haemorrhage [Unknown]
